FAERS Safety Report 17611922 (Version 1)
Quarter: 2020Q2

REPORT INFORMATION
  Report Type: Spontaneous
  Country: US (occurrence: US)
  Receive Date: 20200401
  Receipt Date: 20200401
  Transmission Date: 20200713
  Serious: No
  Sender: FDA-Public Use
  Company Number: US-ASTRAZENECA-2020SE18344

PATIENT
  Sex: Male
  Weight: 110.2 kg

DRUGS (1)
  1. PULMICORT FLEXHALER [Suspect]
     Active Substance: BUDESONIDE
     Indication: ASTHMA
     Dosage: 180 MCG, 1 PUFF, TWICE DAILY
     Route: 055
     Dates: start: 20200126

REACTIONS (2)
  - Device delivery system issue [Unknown]
  - Cough [Unknown]
